FAERS Safety Report 19136270 (Version 4)
Quarter: 2024Q4

REPORT INFORMATION
  Report Type: Spontaneous
  Country: CA (occurrence: CA)
  Receive Date: 20210414
  Receipt Date: 20241028
  Transmission Date: 20250114
  Serious: Yes (Hospitalization, Other)
  Sender: BAUSCH AND LOMB
  Company Number: CA-BAUSCH-BL-2021-011926

PATIENT
  Age: 44 Year
  Sex: Male

DRUGS (39)
  1. ATIVAN [Suspect]
     Active Substance: LORAZEPAM
     Indication: Product used for unknown indication
     Route: 065
  2. ALBUTEROL [Suspect]
     Active Substance: ALBUTEROL
     Indication: Asthma
     Route: 065
  3. ALBUTEROL [Suspect]
     Active Substance: ALBUTEROL
     Dosage: SALBUTAMOL SULFATE
     Route: 065
  4. CETIRIZINE [Suspect]
     Active Substance: CETIRIZINE HYDROCHLORIDE
     Indication: Product used for unknown indication
     Route: 065
  5. CETIRIZINE [Suspect]
     Active Substance: CETIRIZINE HYDROCHLORIDE
     Dosage: CETIRIZINE HYDROCHLORIDE
     Route: 065
  6. CETIRIZINE [Suspect]
     Active Substance: CETIRIZINE HYDROCHLORIDE
     Route: 065
  7. CITALOPRAM [Suspect]
     Active Substance: CITALOPRAM
     Indication: Product used for unknown indication
     Route: 065
  8. CITALOPRAM [Suspect]
     Active Substance: CITALOPRAM
     Dosage: CITALOPRAM HYDROBROMIDE (2 ADMINISTRATIONS)
     Route: 065
  9. MEPOLIZUMAB [Suspect]
     Active Substance: MEPOLIZUMAB
     Indication: Asthma
     Route: 042
  10. MEPOLIZUMAB [Suspect]
     Active Substance: MEPOLIZUMAB
     Route: 042
  11. MEPOLIZUMAB [Suspect]
     Active Substance: MEPOLIZUMAB
     Route: 042
  12. NUCALA [Suspect]
     Active Substance: MEPOLIZUMAB
     Indication: Asthma
     Route: 042
  13. PREDNISONE [Suspect]
     Active Substance: PREDNISONE
     Indication: Asthma
     Route: 065
  14. RABEPRAZOLE [Suspect]
     Active Substance: RABEPRAZOLE
     Indication: Product used for unknown indication
     Route: 065
  15. RABEPRAZOLE [Suspect]
     Active Substance: RABEPRAZOLE
     Route: 048
  16. SPORANOX [Suspect]
     Active Substance: ITRACONAZOLE
     Indication: Product used for unknown indication
     Route: 065
  17. SPORANOX [Suspect]
     Active Substance: ITRACONAZOLE
     Route: 065
  18. SPORANOX [Suspect]
     Active Substance: ITRACONAZOLE
     Route: 065
  19. SPORANOX [Suspect]
     Active Substance: ITRACONAZOLE
     Route: 065
  20. SPORANOX [Suspect]
     Active Substance: ITRACONAZOLE
     Route: 065
  21. SPORANOX [Suspect]
     Active Substance: ITRACONAZOLE
     Route: 065
  22. SPORANOX [Suspect]
     Active Substance: ITRACONAZOLE
     Route: 065
  23. SYMBICORT [Suspect]
     Active Substance: BUDESONIDE\FORMOTEROL FUMARATE DIHYDRATE
     Indication: Product used for unknown indication
     Route: 055
  24. SYMBICORT [Suspect]
     Active Substance: BUDESONIDE\FORMOTEROL FUMARATE DIHYDRATE
     Route: 055
  25. SYMBICORT [Suspect]
     Active Substance: BUDESONIDE\FORMOTEROL FUMARATE DIHYDRATE
     Route: 055
  26. SYMBICORT [Suspect]
     Active Substance: BUDESONIDE\FORMOTEROL FUMARATE DIHYDRATE
     Route: 055
  27. SYMBICORT [Suspect]
     Active Substance: BUDESONIDE\FORMOTEROL FUMARATE DIHYDRATE
     Dosage: ROUTE-INHALATION
     Route: 050
  28. SYMBICORT [Suspect]
     Active Substance: BUDESONIDE\FORMOTEROL FUMARATE DIHYDRATE
     Route: 065
  29. SYMBICORT [Suspect]
     Active Substance: BUDESONIDE\FORMOTEROL FUMARATE DIHYDRATE
     Route: 065
  30. VENTOLIN [Suspect]
     Active Substance: ALBUTEROL SULFATE
     Indication: Product used for unknown indication
     Route: 065
  31. BUDESONIDE\FORMOTEROL [Suspect]
     Active Substance: BUDESONIDE\FORMOTEROL
     Indication: Product used for unknown indication
     Route: 055
  32. BUDESONIDE\FORMOTEROL [Suspect]
     Active Substance: BUDESONIDE\FORMOTEROL
     Dosage: BUDESONIDE/FORMOTEROL FUMARATE
     Route: 055
  33. BUDESONIDE\FORMOTEROL [Suspect]
     Active Substance: BUDESONIDE\FORMOTEROL
     Dosage: BUDESONIDE/FORMOTEROL FUMARATE
     Route: 055
  34. BUDESONIDE\FORMOTEROL [Suspect]
     Active Substance: BUDESONIDE\FORMOTEROL
     Dosage: ROUTE-INHALATION
     Route: 050
  35. BUDESONIDE\FORMOTEROL [Suspect]
     Active Substance: BUDESONIDE\FORMOTEROL
     Dosage: BUDESONIDE;FORMOTEROL FUMARATE
     Route: 065
  36. BUDESONIDE\FORMOTEROL [Suspect]
     Active Substance: BUDESONIDE\FORMOTEROL
     Dosage: ROUTE-INHALATION
     Route: 050
  37. CETIRIZINE HYDROCHLORIDE [Suspect]
     Active Substance: CETIRIZINE HYDROCHLORIDE
     Indication: Product used for unknown indication
     Route: 065
  38. AZITHROMYCIN [Concomitant]
     Active Substance: AZITHROMYCIN
     Indication: Product used for unknown indication
     Route: 065
  39. AZITHROMYCIN [Concomitant]
     Active Substance: AZITHROMYCIN
     Dosage: PMS-AZITHROMYCIN
     Route: 065

REACTIONS (36)
  - Bronchial disorder [Recovering/Resolving]
  - Bronchiectasis [Recovering/Resolving]
  - Bronchopulmonary aspergillosis allergic [Recovering/Resolving]
  - Condition aggravated [Recovering/Resolving]
  - Folliculitis [Recovering/Resolving]
  - Forced expiratory volume decreased [Recovering/Resolving]
  - Haemoptysis [Recovering/Resolving]
  - Hyperventilation [Recovering/Resolving]
  - Lymphadenopathy [Recovering/Resolving]
  - Mycobacterial infection [Recovering/Resolving]
  - Obstructive airways disorder [Recovering/Resolving]
  - Parathyroid gland enlargement [Recovering/Resolving]
  - Secretion discharge [Recovering/Resolving]
  - Sinus congestion [Recovering/Resolving]
  - Tendon disorder [Recovering/Resolving]
  - Weight increased [Recovering/Resolving]
  - Chest pain [Recovering/Resolving]
  - Full blood count abnormal [Unknown]
  - Cough [Recovering/Resolving]
  - Rash [Recovering/Resolving]
  - Chest discomfort [Recovering/Resolving]
  - Lung disorder [Recovering/Resolving]
  - Respiratory disorder [Recovering/Resolving]
  - Upper respiratory fungal infection [Recovering/Resolving]
  - Upper respiratory tract infection [Recovering/Resolving]
  - Sinusitis [Recovering/Resolving]
  - Asthma [Recovering/Resolving]
  - Dyspnoea [Recovering/Resolving]
  - Full blood count abnormal [Recovering/Resolving]
  - Loss of personal independence in daily activities [Recovering/Resolving]
  - Sleep disorder due to a general medical condition [Recovering/Resolving]
  - Wheezing [Recovering/Resolving]
  - Forced expiratory volume [Unknown]
  - Hospitalisation [Unknown]
  - Anxiety [Recovering/Resolving]
  - Therapeutic product effect incomplete [Recovering/Resolving]
